APPROVED DRUG PRODUCT: PROGLYCEM
Active Ingredient: DIAZOXIDE
Strength: 50MG/ML
Dosage Form/Route: SUSPENSION;ORAL
Application: N017453 | Product #001 | TE Code: AB
Applicant: TEVA BRANDED PHARMACEUTICAL PRODUCTS R AND D INC
Approved: Approved Prior to Jan 1, 1982 | RLD: Yes | RS: Yes | Type: RX